FAERS Safety Report 6184807-9 (Version None)
Quarter: 2009Q2

REPORT INFORMATION
  Report Type: 
  Country: None (occurrence: None)
  Receive Date: 20090508
  Receipt Date: 20090430
  Transmission Date: 20091009
  Serious: Yes (Life-Threatening, Hospitalization)
  Sender: FDA-Public Use
  Company Number: JP-ELI_LILLY_AND_COMPANY-JP200903006829

PATIENT
  Age: 32 Year
  Sex: Female

DRUGS (11)
  1. ZYPREXA [Suspect]
     Indication: SCHIZOPHRENIA
     Dosage: 7.5 MG, 2/D
     Route: 048
     Dates: start: 20080821, end: 20090318
  2. LAMICTAL [Concomitant]
     Dosage: 25 MG, DAILY (1/D)
     Route: 048
  3. WINTERMIN [Concomitant]
     Dosage: 50 MG, DAILY (1/D)
     Route: 048
  4. SILECE [Concomitant]
     Dosage: 2 MG, DAILY (1/D)
  5. ERIMIN [Concomitant]
     Dosage: 5 MG, DAILY (1/D)
     Route: 048
  6. AMOXAN [Concomitant]
     Dosage: 75 MG, DAILY (1/D)
     Route: 048
  7. VEGETAMIN A [Concomitant]
     Dosage: 2 D/F, DAILY (1/D)
     Route: 048
  8. HALCION [Concomitant]
     Dosage: 0.25 MG, DAILY (1/D)
     Route: 048
  9. TOLEDOMIN [Concomitant]
     Dosage: 50 MG, DAILY (1/D)
     Route: 048
  10. PROMETHAZINE HCL [Concomitant]
     Dosage: 25 MG, DAILY (1/D)
     Route: 048
  11. DEPAKENE [Concomitant]
     Dosage: 400 MG, DAILY (1/D)
     Route: 048

REACTIONS (2)
  - COMPARTMENT SYNDROME [None]
  - RHABDOMYOLYSIS [None]
